FAERS Safety Report 24921142 (Version 1)
Quarter: 2025Q1

REPORT INFORMATION
  Report Type: Spontaneous
  Country: GB (occurrence: GB)
  Receive Date: 20250204
  Receipt Date: 20250204
  Transmission Date: 20250408
  Serious: No
  Sender: ALKEM
  Company Number: None

PATIENT
  Age: 83 Year
  Sex: Male
  Weight: 58 kg

DRUGS (9)
  1. GABAPENTIN [Suspect]
     Active Substance: GABAPENTIN
     Indication: Product used for unknown indication
     Route: 065
     Dates: start: 20240209, end: 20240215
  2. ATORVASTATIN [Concomitant]
     Active Substance: ATORVASTATIN
     Indication: Adverse drug reaction
     Route: 065
     Dates: start: 20231127
  3. CEPHALEXIN [Concomitant]
     Active Substance: CEPHALEXIN
     Indication: Adverse drug reaction
     Dosage: 1 DOSAGE FORM, TID (ONE TO BE TAKEN THREE TIMES A DAY)
     Route: 065
     Dates: start: 20231204, end: 20240109
  4. CLOPIDOGREL [Concomitant]
     Active Substance: CLOPIDOGREL BISULFATE
     Indication: Adverse drug reaction
     Dosage: 1 DOSAGE FORM, QD (ONE TO BE TAKEN EACH DAY)
     Route: 065
     Dates: start: 20231127, end: 20240129
  5. Diclofenacdiethylammonium [Concomitant]
     Indication: Product used for unknown indication
     Route: 065
     Dates: start: 20240215
  6. FERROUS FUMARATE [Concomitant]
     Active Substance: FERROUS FUMARATE
     Indication: Anaemia
     Dosage: 1 DOSAGE FORM, BID (ONE TO BE TAKEN TWICE A DAY - TO HELP WITH BUILDING BLOOD CELLS)
     Route: 065
     Dates: start: 20231229, end: 20240129
  7. LAMOTRIGINE [Concomitant]
     Active Substance: LAMOTRIGINE
     Indication: Seizure
     Dosage: 3 DOSAGE FORM, BID (THREE TO BE TAKEN TWICE A DAY)
     Route: 065
     Dates: start: 20231127
  8. NITROFURANTOIN [Concomitant]
     Active Substance: NITROFURANTOIN
     Indication: Product used for unknown indication
     Dosage: 1 DOSAGE FORM, QID (ONE TO BE TAKEN FOUR TIMES A DAY)
     Route: 065
     Dates: start: 20240215
  9. SENOKOT [Concomitant]
     Active Substance: SENNOSIDES
     Indication: Constipation
     Route: 065
     Dates: start: 20231127

REACTIONS (2)
  - Somnolence [Recovered/Resolved]
  - Tremor [Unknown]

NARRATIVE: CASE EVENT DATE: 20240209
